FAERS Safety Report 24182105 (Version 3)
Quarter: 2024Q4

REPORT INFORMATION
  Report Type: Spontaneous
  Country: US (occurrence: US)
  Receive Date: 20240807
  Receipt Date: 20241123
  Transmission Date: 20250114
  Serious: No
  Sender: MERCK
  Company Number: US-009507513-2408USA000847

PATIENT
  Sex: Male
  Weight: 87.5 kg

DRUGS (21)
  1. WINREVAIR [Suspect]
     Active Substance: SOTATERCEPT-CSRK
     Indication: Product used for unknown indication
     Dosage: UNK
     Dates: start: 20240725, end: 20240725
  2. WINREVAIR [Suspect]
     Active Substance: SOTATERCEPT-CSRK
     Dosage: UNK
     Dates: start: 202410, end: 202410
  3. REMODULIN [Concomitant]
     Active Substance: TREPROSTINIL
     Indication: Pulmonary arterial hypertension
     Dosage: 0.084 MICROGRAM PER KILOGRAM
     Route: 041
     Dates: start: 2023
  4. FORMOTEROL FUMARATE\MOMETASONE FUROATE [Concomitant]
     Active Substance: FORMOTEROL FUMARATE\MOMETASONE FUROATE
  5. SIMVASTATIN [Concomitant]
     Active Substance: SIMVASTATIN
  6. MONTELUKAST SODIUM [Concomitant]
     Active Substance: MONTELUKAST SODIUM
  7. SILDENAFIL [Concomitant]
     Active Substance: SILDENAFIL
  8. FENOFIBRATE [Concomitant]
     Active Substance: FENOFIBRATE
  9. IMODIUM [Concomitant]
     Active Substance: LOPERAMIDE HYDROCHLORIDE
  10. TYLENOL [Concomitant]
     Active Substance: ACETAMINOPHEN
  11. FOLIC ACID [Concomitant]
     Active Substance: FOLIC ACID
  12. PROTONIX [Concomitant]
     Active Substance: PANTOPRAZOLE SODIUM
  13. FLONASE ALLERGY RELIEF [Concomitant]
     Active Substance: FLUTICASONE PROPIONATE
  14. VITAMIN D2 [Concomitant]
     Active Substance: ERGOCALCIFEROL
  15. POTASSIUM [Concomitant]
     Active Substance: POTASSIUM
  16. DICLOFENAC SODIUM [Concomitant]
     Active Substance: DICLOFENAC SODIUM
  17. OXYGEN [Concomitant]
     Active Substance: OXYGEN
  18. DOXAZOSIN MESYLATE [Concomitant]
     Active Substance: DOXAZOSIN MESYLATE
  19. TORSEMIDE [Concomitant]
     Active Substance: TORSEMIDE
  20. FERROUS SULFATE [Concomitant]
     Active Substance: FERROUS SULFATE
  21. OXYCODONE AND ACETAMINOPHEN [Concomitant]
     Active Substance: ACETAMINOPHEN\OXYCODONE HYDROCHLORIDE

REACTIONS (2)
  - Drug eruption [Recovered/Resolved]
  - Nasopharyngitis [Not Recovered/Not Resolved]

NARRATIVE: CASE EVENT DATE: 20240101
